FAERS Safety Report 11468116 (Version 2)
Quarter: 2015Q3

REPORT INFORMATION
  Report Type: Spontaneous
  Country: US (occurrence: US)
  Receive Date: 20150908
  Receipt Date: 20150909
  Transmission Date: 20151125
  Serious: Yes (Life-Threatening, Other)
  Sender: FDA-Public Use
  Company Number: US-BRISTOL-MYERS SQUIBB COMPANY-BMS-2015-058750

PATIENT
  Age: 78 Year
  Sex: Male

DRUGS (2)
  1. COUMADIN [Suspect]
     Active Substance: WARFARIN SODIUM
     Indication: ATRIAL FIBRILLATION
     Dosage: 5 MG, QOD
     Route: 065
     Dates: start: 201508, end: 2015
  2. XARELTO [Concomitant]
     Active Substance: RIVAROXABAN
     Indication: PRODUCT USED FOR UNKNOWN INDICATION
     Dosage: UNK UNK, QOD
     Route: 065
     Dates: start: 201508

REACTIONS (4)
  - Aortic aneurysm [Unknown]
  - Atrial fibrillation [Unknown]
  - Heart rate increased [Unknown]
  - Adverse event [Unknown]

NARRATIVE: CASE EVENT DATE: 201508
